FAERS Safety Report 19166347 (Version 2)
Quarter: 2021Q3

REPORT INFORMATION
  Report Type: Spontaneous
  Country: IT (occurrence: IT)
  Receive Date: 20210422
  Receipt Date: 20210713
  Transmission Date: 20211014
  Serious: Yes (Hospitalization, Other)
  Sender: FDA-Public Use
  Company Number: IT-DRREDDYS-GER/ITL/21/0134618

PATIENT
  Age: 60 Year
  Sex: Female

DRUGS (10)
  1. BEVACIZUMAB. [Suspect]
     Active Substance: BEVACIZUMAB
     Indication: BREAST CANCER STAGE IV
  2. METOCLOPRAMIDE. [Concomitant]
     Active Substance: METOCLOPRAMIDE
     Indication: PRODUCT USED FOR UNKNOWN INDICATION
  3. PALBOCICLIB [Suspect]
     Active Substance: PALBOCICLIB
     Indication: BREAST CANCER STAGE IV
  4. FONDAPARINUX?SODIUM [Concomitant]
     Active Substance: FONDAPARINUX SODIUM
     Indication: ANTICOAGULANT THERAPY
  5. FULVESTRANT. [Suspect]
     Active Substance: FULVESTRANT
     Indication: BREAST CANCER STAGE IV
  6. MAGNESIUM AND POTASSIUM SALTS SUPPLEMENTATION [Suspect]
     Active Substance: MAGNESIUM\POTASSIUM
     Indication: BLOOD MAGNESIUM
  7. DEXAMETHASONE. [Concomitant]
     Active Substance: DEXAMETHASONE
     Indication: OEDEMA
  8. MAGNESIUM?SULPHATE [Concomitant]
     Indication: OEDEMA
  9. LEVETIRACETAM. [Concomitant]
     Active Substance: LEVETIRACETAM
     Indication: SEIZURE
  10. MANNITOL. [Concomitant]
     Active Substance: MANNITOL
     Indication: OEDEMA

REACTIONS (8)
  - Hypomagnesaemia [Recovering/Resolving]
  - Abdominal pain [Unknown]
  - Posterior reversible encephalopathy syndrome [Recovering/Resolving]
  - Depressed level of consciousness [Recovered/Resolved]
  - Nausea [Unknown]
  - Vomiting [Unknown]
  - Ascites [Unknown]
  - Cerebral venous thrombosis [Recovering/Resolving]
